FAERS Safety Report 20196155 (Version 2)
Quarter: 2022Q1

REPORT INFORMATION
  Report Type: Spontaneous
  Country: US (occurrence: US)
  Receive Date: 20211216
  Receipt Date: 20220113
  Transmission Date: 20220424
  Serious: Yes (Life-Threatening, Hospitalization)
  Sender: FDA-Public Use
  Company Number: US-TEVA-2021-US-1986906

PATIENT
  Age: 53 Year
  Sex: Male

DRUGS (3)
  1. DEXAMETHASONE [Suspect]
     Active Substance: DEXAMETHASONE
     Indication: Haemophagocytic lymphohistiocytosis
     Route: 065
  2. ETOPOSIDE [Suspect]
     Active Substance: ETOPOSIDE
     Indication: Haemophagocytic lymphohistiocytosis
     Dosage: SEVERAL CYCLES OF ETOPOSIDE
     Route: 065
  3. IVERMECTIN [Concomitant]
     Active Substance: IVERMECTIN
     Indication: Strongyloidiasis
     Route: 065

REACTIONS (1)
  - Drug ineffective [Unknown]
